FAERS Safety Report 15375972 (Version 6)
Quarter: 2019Q4

REPORT INFORMATION
  Report Type: Spontaneous
  Country: US (occurrence: US)
  Receive Date: 20180912
  Receipt Date: 20191017
  Transmission Date: 20200122
  Serious: No
  Sender: FDA-Public Use
  Company Number: US-PFIZER INC-2018361788

PATIENT
  Age: 58 Year
  Sex: Female

DRUGS (6)
  1. PROBIOTICS [BIFIDOBACTERIUM LONGUM;LACTOBACILLUS ACIDOPHILUS;LACTOBACI [Concomitant]
     Dosage: UNK
  2. LYRICA [Suspect]
     Active Substance: PREGABALIN
     Indication: NEUROPATHY PERIPHERAL
  3. MORPHINE [Concomitant]
     Active Substance: MORPHINE
     Indication: PAIN
     Dosage: 90 MG, DAILY (ONE EVERY 8 HOURS)
  4. LYRICA [Suspect]
     Active Substance: PREGABALIN
     Indication: NEURALGIA
     Dosage: 50 MG, 3X/DAY
     Route: 048
  5. LYRICA [Suspect]
     Active Substance: PREGABALIN
     Indication: POLYNEUROPATHY
     Dosage: 50 MG, 1X/DAY
     Dates: start: 20180830, end: 20180905
  6. LISINOPRIL. [Concomitant]
     Active Substance: LISINOPRIL
     Indication: HYPERTENSION
     Dosage: UNK

REACTIONS (11)
  - Crying [Unknown]
  - Weight decreased [Unknown]
  - Withdrawal syndrome [Unknown]
  - Restless legs syndrome [Unknown]
  - Fluid retention [Unknown]
  - Drug ineffective [Unknown]
  - Intentional product use issue [Unknown]
  - Feeling abnormal [Unknown]
  - Depression [Recovering/Resolving]
  - Nausea [Recovering/Resolving]
  - Malaise [Unknown]

NARRATIVE: CASE EVENT DATE: 2018
